FAERS Safety Report 23247495 (Version 5)
Quarter: 2024Q1

REPORT INFORMATION
  Report Type: Report from Study
  Country: IN (occurrence: IN)
  Receive Date: 20231130
  Receipt Date: 20240327
  Transmission Date: 20240410
  Serious: Yes (Other)
  Sender: FDA-Public Use
  Company Number: IN-002147023-NVSC2020IN362551

PATIENT
  Age: 42 Year
  Sex: Female

DRUGS (3)
  1. RIBOCICLIB [Suspect]
     Active Substance: RIBOCICLIB
     Indication: Hormone receptor positive HER2 negative breast cancer
     Dosage: 600 MG, QD (3 CYCLES FOR 3 MONTHS)
     Route: 048
     Dates: start: 20190808
  2. RIBOCICLIB [Suspect]
     Active Substance: RIBOCICLIB
     Dosage: 400 MG
     Route: 048
  3. RIBOCICLIB [Suspect]
     Active Substance: RIBOCICLIB
     Dosage: UNK
     Route: 065
     Dates: start: 20231128

REACTIONS (9)
  - Pancytopenia [Unknown]
  - Metastases to lymph nodes [Unknown]
  - Hormone receptor positive HER2 negative breast cancer [Unknown]
  - Malignant neoplasm progression [Unknown]
  - Vertebral lesion [Unknown]
  - Drug intolerance [Unknown]
  - Pain [Unknown]
  - Swelling [Unknown]
  - Back pain [Unknown]

NARRATIVE: CASE EVENT DATE: 20190811
